FAERS Safety Report 6816274-3 (Version None)
Quarter: 2010Q2

REPORT INFORMATION
  Report Type: 
  Country: None (occurrence: None)
  Receive Date: 20100630
  Receipt Date: 20100615
  Transmission Date: 20101027
  Serious: Yes (Death)
  Sender: FDA-Public Use
  Company Number: AE 2010-113

PATIENT
  Age: 32 Year
  Sex: Male
  Weight: 141.0687 kg

DRUGS (5)
  1. FAZACLO ODT [Suspect]
     Indication: SCHIZOAFFECTIVE DISORDER
     Dosage: 500 MG DAILY PO
     Route: 048
     Dates: start: 20081119, end: 20100518
  2. ABILIFY [Concomitant]
  3. LEXAPRO [Concomitant]
  4. LISINOPRIL AND HYDROCHLOROTHIAZIDE [Concomitant]
  5. SIMVASTATIN [Concomitant]

REACTIONS (2)
  - COMPLETED SUICIDE [None]
  - GUN SHOT WOUND [None]
